FAERS Safety Report 9733175 (Version 1)
Quarter: 2013Q4

REPORT INFORMATION
  Report Type: Spontaneous
  Country: US (occurrence: None)
  Receive Date: 20131204
  Receipt Date: 20131204
  Transmission Date: 20140711
  Serious: Yes (Hospitalization)
  Sender: FDA-Public Use
  Company Number: None

PATIENT
  Age: 67 Year
  Sex: Female

DRUGS (6)
  1. SULFAMETHOXAZOLE/TRIMETHOPRIM 800/160 [Suspect]
     Indication: SKIN INFECTION
     Dosage: 1 PILL BID ORAL
     Route: 048
     Dates: start: 20130903, end: 20130903
  2. LISINOPRIL [Concomitant]
  3. FAMOTIDINE [Concomitant]
  4. SIMVASTATIN [Concomitant]
  5. METFORMIN [Concomitant]
  6. ASPIRIN [Concomitant]

REACTIONS (2)
  - Swollen tongue [None]
  - Dyspnoea [None]
